FAERS Safety Report 16285746 (Version 1)
Quarter: 2019Q2

REPORT INFORMATION
  Report Type: Spontaneous
  Country: US (occurrence: US)
  Receive Date: 20190506
  Receipt Date: 20190506
  Transmission Date: 20190711
  Serious: Yes (Hospitalization)
  Sender: FDA-Public Use
  Company Number: None

PATIENT
  Age: 43 Year
  Sex: Male
  Weight: 90.9 kg

DRUGS (2)
  1. FENTANYL. [Suspect]
     Active Substance: FENTANYL
     Indication: PREOPERATIVE CARE
     Dates: start: 20190502, end: 20190502
  2. FENTANYL. [Concomitant]
     Active Substance: FENTANYL
     Dates: start: 20190502, end: 20190502

REACTIONS (1)
  - Rash [None]

NARRATIVE: CASE EVENT DATE: 20190502
